FAERS Safety Report 10252605 (Version 1)
Quarter: 2014Q2

REPORT INFORMATION
  Report Type: Spontaneous
  Country: US (occurrence: US)
  Receive Date: 20140623
  Receipt Date: 20140623
  Transmission Date: 20141212
  Serious: Yes (Hospitalization)
  Sender: FDA-Public Use
  Company Number: US-INCYTE CORPORATION-2014IN001721

PATIENT
  Age: 80 Year
  Sex: Female

DRUGS (15)
  1. JAKAFI [Suspect]
     Indication: MYELOFIBROSIS
     Dosage: 40 MG, BID
     Route: 048
     Dates: start: 20140409, end: 2014
  2. LANTUS [Concomitant]
  3. LASIX                              /00032601/ [Concomitant]
  4. LOPID [Concomitant]
  5. ADALAT CC [Concomitant]
  6. ATENOLOL [Concomitant]
  7. METFORMIN HYDROCHLORIDE [Concomitant]
  8. NEXIUM                             /01479302/ [Concomitant]
  9. CLONIDINE HYDROCHLORIDE [Concomitant]
  10. CELEXA                             /00582602/ [Concomitant]
  11. MICARDIS [Concomitant]
  12. SPIRIVA [Concomitant]
  13. ASPIRIN [Concomitant]
  14. IRON [Concomitant]
  15. NIACIN [Concomitant]

REACTIONS (1)
  - Hospitalisation [Unknown]
